FAERS Safety Report 8519615-4 (Version None)
Quarter: 2012Q3

REPORT INFORMATION
  Report Type: 
  Country: None (occurrence: None)
  Receive Date: 20120718
  Receipt Date: 20120703
  Transmission Date: 20120928
  Serious: Yes (Other)
  Sender: FDA-Public Use
  Company Number: CHPA2012CA014999

PATIENT
  Age: 54 Year
  Sex: Female

DRUGS (1)
  1. OTRIVIN [Suspect]
     Indication: SINUS DISORDER
     Dosage: UNK, 10-15 TIMES PER DAY
     Route: 045

REACTIONS (5)
  - SINUSITIS [None]
  - NASAL SEPTUM DEVIATION [None]
  - DISEASE RECURRENCE [None]
  - OVERDOSE [None]
  - DRUG DEPENDENCE [None]
